FAERS Safety Report 11805719 (Version 2)
Quarter: 2016Q1

REPORT INFORMATION
  Report Type: Spontaneous
  Country: US (occurrence: US)
  Receive Date: 20151207
  Receipt Date: 20160218
  Transmission Date: 20160525
  Serious: No
  Sender: FDA-Public Use
  Company Number: US-LEO PHARMA-238799

PATIENT
  Age: 85 Year
  Sex: Male

DRUGS (1)
  1. PICATO [Suspect]
     Active Substance: INGENOL MEBUTATE
     Indication: ACTINIC KERATOSIS
     Route: 061
     Dates: start: 20151128, end: 20151129

REACTIONS (9)
  - Drug prescribing error [Unknown]
  - Incorrect drug administration duration [Unknown]
  - Skin tightness [Recovered/Resolved]
  - Application site reaction [Recovered/Resolved]
  - Drug administration error [Unknown]
  - Application site swelling [Recovered/Resolved]
  - Application site erythema [Recovered/Resolved]
  - Application site pain [Recovered/Resolved]
  - Wrong technique in product usage process [Unknown]
